FAERS Safety Report 4886587-3 (Version None)
Quarter: 2006Q1

REPORT INFORMATION
  Report Type: 
  Country: None (occurrence: None)
  Receive Date: 20060120
  Receipt Date: 20060117
  Transmission Date: 20060701
  Serious: Yes (Hospitalization)
  Sender: FDA-Public Use
  Company Number: PHBS2006US00982

PATIENT
  Age: 16 Year
  Sex: Male

DRUGS (3)
  1. METHYLPHENIDATE [Suspect]
     Indication: ATTENTION DEFICIT/HYPERACTIVITY DISORDER
     Dosage: 30 MG, BID
     Route: 048
  2. BUPROPION [Suspect]
     Dosage: 100 MG, BID
  3. ERYTHROMYCIN [Suspect]
     Dosage: 999 MG, QD
     Route: 048

REACTIONS (12)
  - BLOOD CREATINE PHOSPHOKINASE INCREASED [None]
  - BLOOD CREATINE PHOSPHOKINASE MB [None]
  - C-REACTIVE PROTEIN INCREASED [None]
  - CARDIAC ENZYMES INCREASED [None]
  - CHEST PAIN [None]
  - DRUG INTERACTION [None]
  - ELECTROCARDIOGRAM ABNORMAL [None]
  - HEART RATE INCREASED [None]
  - MYOCARDIAL INFARCTION [None]
  - RED BLOOD CELL SEDIMENTATION RATE INCREASED [None]
  - TROPONIN INCREASED [None]
  - VASOSPASM [None]
